FAERS Safety Report 7276947-8 (Version None)
Quarter: 2011Q1

REPORT INFORMATION
  Report Type: 
  Country: None (occurrence: None)
  Receive Date: 20110207
  Receipt Date: 20110121
  Transmission Date: 20110831
  Serious: No
  Sender: FDA-Public Use
  Company Number: US-BIOGENIDEC-2011BI003554

PATIENT
  Age: 46 Year
  Sex: Female

DRUGS (2)
  1. FLU SHOT [Concomitant]
  2. TYSABRI [Suspect]
     Indication: MULTIPLE SCLEROSIS
     Route: 042
     Dates: start: 20090507

REACTIONS (2)
  - ALLERGY TO VACCINE [None]
  - MEMORY IMPAIRMENT [None]
